FAERS Safety Report 9853517 (Version 4)
Quarter: 2014Q2

REPORT INFORMATION
  Report Type: Spontaneous
  Country: US (occurrence: US)
  Receive Date: 20140129
  Receipt Date: 20140521
  Transmission Date: 20141212
  Serious: Yes (Hospitalization)
  Sender: FDA-Public Use
  Company Number: US-B.I. PHARMACEUTICALS,INC./RIDGEFIELD-2014-BI-03723BP

PATIENT
  Age: 90 Year
  Sex: Male
  Weight: 92.99 kg

DRUGS (7)
  1. PRADAXA [Suspect]
     Indication: ATRIAL FIBRILLATION
     Dosage: 300 MG
     Route: 048
     Dates: start: 20110526, end: 201201
  2. TERAZOSINE [Concomitant]
     Route: 065
     Dates: start: 2004
  3. ATENOLOL [Concomitant]
     Route: 065
     Dates: start: 2011, end: 2012
  4. DICYCLOMINE [Concomitant]
     Route: 065
     Dates: start: 2004
  5. HYDROCHLOROTHIAZIDE [Concomitant]
     Route: 065
     Dates: start: 2004
  6. PROTONIX [Concomitant]
     Route: 065
     Dates: start: 2004
  7. LEVOTHROID [Concomitant]
     Route: 065
     Dates: start: 2004

REACTIONS (1)
  - Haemorrhage [Unknown]
